FAERS Safety Report 4268570-4 (Version None)
Quarter: 2004Q1

REPORT INFORMATION
  Report Type: 
  Country: None (occurrence: None)
  Receive Date: 20040108
  Receipt Date: 20031231
  Transmission Date: 20041129
  Serious: No
  Sender: FDA-Public Use
  Company Number: 2003SE05514

PATIENT
  Age: 62 Year
  Sex: Female
  Weight: 89 kg

DRUGS (4)
  1. SEROQUEL [Suspect]
     Indication: PERSONALITY DISORDER
     Dosage: 300 MG DAILY PO
     Route: 048
     Dates: start: 20031001
  2. ORAP FORTE [Concomitant]
  3. EFFEXOR [Concomitant]
  4. XANAX [Concomitant]

REACTIONS (1)
  - SPEECH DISORDER [None]
